FAERS Safety Report 7542917-5 (Version None)
Quarter: 2011Q2

REPORT INFORMATION
  Report Type: 
  Country: None (occurrence: None)
  Receive Date: 20110613
  Receipt Date: 20110608
  Transmission Date: 20111010
  Serious: Yes (Life-Threatening, Hospitalization)
  Sender: FDA-Public Use
  Company Number: FR-BRISTOL-MYERS SQUIBB COMPANY-15641814

PATIENT
  Age: 62 Year
  Sex: Male

DRUGS (5)
  1. SPRYCEL [Suspect]
     Indication: CHRONIC MYELOID LEUKAEMIA
     Route: 048
     Dates: start: 20090424
  2. CRESTOR [Concomitant]
     Indication: HYPERCHOLESTEROLAEMIA
     Route: 048
  3. PANTOPRAZOLE SODIUM [Concomitant]
     Indication: GASTRITIS
  4. HUMALOG [Concomitant]
  5. VICTOZA [Concomitant]
     Indication: DIABETES MELLITUS

REACTIONS (2)
  - PULMONARY EMBOLISM [None]
  - MYOCARDIAL INFARCTION [None]
